APPROVED DRUG PRODUCT: ROMIDEPSIN
Active Ingredient: ROMIDEPSIN
Strength: 10MG/2ML (5MG/ML) **Federal Register determination that product was not discontinued or withdrawn for safety or effectiveness reasons**
Dosage Form/Route: SOLUTION;INTRAVENOUS
Application: N208574 | Product #001
Applicant: TEVA PHARMACEUTICALS USA INC
Approved: Mar 13, 2020 | RLD: Yes | RS: No | Type: DISCN